FAERS Safety Report 6590760-6 (Version None)
Quarter: 2010Q1

REPORT INFORMATION
  Report Type: 
  Country: None (occurrence: None)
  Receive Date: 20100212
  Receipt Date: 20100126
  Transmission Date: 20100710
  Serious: Yes (Hospitalization, Other)
  Sender: FDA-Public Use
  Company Number: 231607K09USA

PATIENT
  Age: 36 Year
  Sex: Male

DRUGS (7)
  1. REBIF [Suspect]
     Indication: MULTIPLE SCLEROSIS
     Dosage: 44 MCG, 3 IN 1 WEEKS, SUBCUTANEOUS
     Route: 058
     Dates: start: 20080403
  2. ZEGERID (OMEPRAZOLE) [Concomitant]
  3. CITALOPRAM (CITALOPRAM /00582601/) [Concomitant]
  4. SIMVASTATIN [Concomitant]
  5. TIZANIDINE HCL [Concomitant]
  6. SYNTHROID [Concomitant]
  7. GABAPENTIN [Concomitant]

REACTIONS (4)
  - BLOOD URINE PRESENT [None]
  - FALL [None]
  - TENDON DISORDER [None]
  - THROMBOSIS [None]
